FAERS Safety Report 5420432-2 (Version None)
Quarter: 2007Q3

REPORT INFORMATION
  Report Type: 
  Country: None (occurrence: None)
  Receive Date: 20070816
  Receipt Date: 20070803
  Transmission Date: 20080115
  Serious: Yes (Death)
  Sender: FDA-Public Use
  Company Number: MC200700540

PATIENT
  Age: 52 Year
  Sex: Male

DRUGS (1)
  1. ANGIOMAX, ANGIOX(BIVALIRUDIN) INJECTION [Suspect]

REACTIONS (3)
  - CARDIO-RESPIRATORY ARREST [None]
  - CORONARY ARTERY OCCLUSION [None]
  - POST PROCEDURAL COMPLICATION [None]
